FAERS Safety Report 22368077 (Version 1)
Quarter: 2023Q2

REPORT INFORMATION
  Report Type: Spontaneous
  Country: US (occurrence: None)
  Receive Date: 20230525
  Receipt Date: 20230525
  Transmission Date: 20230721
  Serious: No
  Sender: FDA-Public Use
  Company Number: None

PATIENT
  Age: 72 Year
  Sex: Female
  Weight: 92.25 kg

DRUGS (6)
  1. OFLOXACIN [Suspect]
     Active Substance: OFLOXACIN
     Indication: Eye infection
     Dosage: FREQUENCY : 4 TIMES A DAY;?
     Route: 047
  2. PLAQUENIL [Concomitant]
     Active Substance: HYDROXYCHLOROQUINE SULFATE
  3. SYNTHROID [Concomitant]
     Active Substance: LEVOTHYROXINE SODIUM
  4. POTASSIUM [Concomitant]
     Active Substance: POTASSIUM
  5. PHOSPHORUS [Concomitant]
     Active Substance: PHOSPHORUS
  6. LISINOPRIL [Concomitant]
     Active Substance: LISINOPRIL

REACTIONS (7)
  - Drug ineffective [None]
  - Metamorphopsia [None]
  - Eye irritation [None]
  - Vitreous floaters [None]
  - Photosensitivity reaction [None]
  - Migraine [None]
  - Recalled product administered [None]

NARRATIVE: CASE EVENT DATE: 20220502
